FAERS Safety Report 23704622 (Version 1)
Quarter: 2024Q2

REPORT INFORMATION
  Report Type: Spontaneous
  Country: US (occurrence: US)
  Receive Date: 20240404
  Receipt Date: 20240404
  Transmission Date: 20240716
  Serious: No
  Sender: FDA-Public Use
  Company Number: US-JNJFOC-20240371702

PATIENT
  Age: 63 Year

DRUGS (4)
  1. RYBREVANT [Suspect]
     Active Substance: AMIVANTAMAB-VMJW
     Indication: Lung adenocarcinoma
     Route: 065
     Dates: start: 202206
  2. RYBREVANT [Suspect]
     Active Substance: AMIVANTAMAB-VMJW
     Route: 065
     Dates: start: 20240315, end: 20240315
  3. BENADRYL [Concomitant]
     Active Substance: DIPHENHYDRAMINE HYDROCHLORIDE
     Indication: Premedication
     Route: 065
  4. TYLENOL [Concomitant]
     Active Substance: ACETAMINOPHEN
     Indication: Premedication

REACTIONS (6)
  - Blood pressure increased [Unknown]
  - Infusion related reaction [Unknown]
  - Abdominal pain upper [Unknown]
  - Back pain [Unknown]
  - Nasopharyngitis [Unknown]
  - Product dose omission issue [Unknown]

NARRATIVE: CASE EVENT DATE: 20240315
